FAERS Safety Report 26051819 (Version 1)
Quarter: 2025Q4

REPORT INFORMATION
  Report Type: Spontaneous
  Country: US (occurrence: None)
  Receive Date: 20251117
  Receipt Date: 20251117
  Transmission Date: 20260118
  Serious: No
  Sender: APOTEX
  Company Number: US-APOTEX-2025AP031657

PATIENT
  Sex: Female

DRUGS (2)
  1. FLUTICASONE [Suspect]
     Active Substance: FLUTICASONE
     Indication: Product used for unknown indication
     Dosage: UNK
     Route: 065
  2. FLUTICASONE [Suspect]
     Active Substance: FLUTICASONE

REACTIONS (4)
  - Accidental exposure to product [Unknown]
  - Cough [Unknown]
  - Nasal discomfort [Unknown]
  - Dry eye [Unknown]

NARRATIVE: CASE EVENT DATE: 20251027
